FAERS Safety Report 22893827 (Version 2)
Quarter: 2023Q4

REPORT INFORMATION
  Report Type: Other
  Country: GB (occurrence: None)
  Receive Date: 20230901
  Receipt Date: 20231017
  Transmission Date: 20240109
  Serious: Yes (Other)
  Sender: FDA-Public Use
  Company Number: GB-ROCHE-3413445

PATIENT
  Age: 62 Year
  Sex: Male

DRUGS (8)
  1. HEMLIBRA [Suspect]
     Active Substance: EMICIZUMAB-KXWH
     Indication: Factor VIII deficiency
     Route: 065
     Dates: start: 201803
  2. HEMLIBRA [Suspect]
     Active Substance: EMICIZUMAB-KXWH
     Dosage: 28 MCG/ML
     Route: 065
     Dates: start: 201909
  3. HEMLIBRA [Suspect]
     Active Substance: EMICIZUMAB-KXWH
     Dosage: 300MCG
     Route: 065
     Dates: start: 202103
  4. HEMLIBRA [Suspect]
     Active Substance: EMICIZUMAB-KXWH
     Dosage: 13MCG/ML
     Route: 065
     Dates: start: 201910
  5. HEMLIBRA [Suspect]
     Active Substance: EMICIZUMAB-KXWH
     Dosage: 8 MCG/ML
     Route: 065
     Dates: start: 202106
  6. HEMLIBRA [Suspect]
     Active Substance: EMICIZUMAB-KXWH
     Dosage: 5MCG/ML
     Route: 065
     Dates: start: 20210810
  7. HEMLIBRA [Suspect]
     Active Substance: EMICIZUMAB-KXWH
     Dosage: 8 MCG/ML
     Route: 065
     Dates: start: 20210921
  8. HEMLIBRA [Suspect]
     Active Substance: EMICIZUMAB-KXWH
     Route: 065
     Dates: start: 20180603, end: 20230418

REACTIONS (11)
  - Tibia fracture [Unknown]
  - Hepatic steatosis [Recovering/Resolving]
  - Drug ineffective [Unknown]
  - Weight increased [Unknown]
  - Increased tendency to bruise [Unknown]
  - Injury [Unknown]
  - Amputee [Unknown]
  - Wheelchair user [Unknown]
  - Haemorrhage [Unknown]
  - Drug level decreased [Unknown]
  - Drug specific antibody present [Unknown]

NARRATIVE: CASE EVENT DATE: 20181101
